FAERS Safety Report 4583722-1 (Version None)
Quarter: 2005Q1

REPORT INFORMATION
  Report Type: 
  Country: None (occurrence: None)
  Receive Date: 20050211
  Receipt Date: 20050112
  Transmission Date: 20050727
  Serious: Yes (Hospitalization)
  Sender: FDA-Public Use
  Company Number: 9039997-2005-00018

PATIENT

DRUGS (1)
  1. LEVULAN [Suspect]
     Indication: BARRETT'S OESOPHAGUS
     Dosage: 30MG/KG, ONCE, ORAL
     Route: 048

REACTIONS (2)
  - ODYNOPHAGIA [None]
  - PYREXIA [None]
